FAERS Safety Report 4469498-7 (Version None)
Quarter: 2004Q4

REPORT INFORMATION
  Report Type: 
  Country: None (occurrence: None)
  Receive Date: 20041005
  Receipt Date: 20041005
  Transmission Date: 20050328
  Serious: Yes (Hospitalization)
  Sender: FDA-Public Use
  Company Number: None

PATIENT
  Sex: Male

DRUGS (11)
  1. WARFARIN SODIUM [Suspect]
     Indication: DEEP VEIN THROMBOSIS
     Dosage: 10 MG MON / FRI ORAL
     Route: 048
  2. WARFARIN SODIUM [Suspect]
     Dosage: 5 MG ALL OTHER ORAL
     Route: 048
  3. HYDROCHLOROTHIAZIDE [Concomitant]
  4. RABEPRAZOLE SODIUM [Concomitant]
  5. FOLIC ACID [Concomitant]
  6. LISINOPRIL [Concomitant]
  7. METFORMIN [Concomitant]
  8. MULTI-VITAMIN [Concomitant]
  9. NIACIN [Concomitant]
  10. SIMVASTATIN [Concomitant]
  11. THIAMINE [Concomitant]

REACTIONS (1)
  - HAEMATEMESIS [None]
